FAERS Safety Report 14038482 (Version 2)
Quarter: 2017Q4

REPORT INFORMATION
  Report Type: Spontaneous
  Country: CZ (occurrence: CZ)
  Receive Date: 20171004
  Receipt Date: 20171005
  Transmission Date: 20180321
  Serious: Yes (Other)
  Sender: FDA-Public Use
  Company Number: CZ-SA-2017SA176582

PATIENT
  Age: 64 Year
  Sex: Female

DRUGS (11)
  1. NORMAL SALINE [Concomitant]
     Active Substance: SODIUM CHLORIDE
     Route: 042
     Dates: start: 20170919
  2. FERRLECIT [Suspect]
     Active Substance: SODIUM FERRIC GLUCONATE COMPLEX
     Route: 041
     Dates: start: 20170512, end: 20170919
  3. EUTHYROX [Concomitant]
     Active Substance: LEVOTHYROXINE SODIUM
     Dosage: 1-0-0 MONDAY-FRIDAY
     Route: 065
  4. ROCALTROL [Concomitant]
     Active Substance: CALCITRIOL
     Dosage: 1-0-0
     Route: 065
  5. ARANESP [Concomitant]
     Active Substance: DARBEPOETIN ALFA
     Route: 065
  6. FURON [Concomitant]
     Active Substance: FUROSEMIDE
     Dosage: 1-0-0
     Route: 065
  7. LANZUL [Concomitant]
     Active Substance: LANSOPRAZOLE
     Dosage: 1-0-0
     Route: 065
  8. PREDNISON [Concomitant]
     Active Substance: PREDNISONE
     Dosage: 1-0-0
     Route: 065
  9. BETALOC ZOK [Concomitant]
     Active Substance: METOPROLOL SUCCINATE
     Dosage: 1-0-0
     Route: 065
  10. KAPIDIN [Concomitant]
     Dosage: 1-0-0
     Route: 065
  11. MILURIT [Concomitant]
     Active Substance: ALLOPURINOL
     Dosage: 1-0-1
     Route: 065

REACTIONS (6)
  - Asthenia [Recovered/Resolved]
  - Paraesthesia oral [Recovered/Resolved]
  - Headache [Recovered/Resolved]
  - Product quality issue [Unknown]
  - Hypotension [Recovered/Resolved]
  - Head discomfort [Recovered/Resolved]

NARRATIVE: CASE EVENT DATE: 20170919
